FAERS Safety Report 13424021 (Version 2)
Quarter: 2017Q2

REPORT INFORMATION
  Report Type: Spontaneous
  Country: GR (occurrence: GR)
  Receive Date: 20170410
  Receipt Date: 20170518
  Transmission Date: 20170830
  Serious: Yes (Life-Threatening, Hospitalization)
  Sender: FDA-Public Use
  Company Number: GR-BAYER-2017-061827

PATIENT
  Age: 73 Year
  Sex: Male

DRUGS (9)
  1. AUGMENTIN [Concomitant]
     Active Substance: AMOXICILLIN\CLAVULANATE POTASSIUM
     Indication: PNEUMONIA
     Dosage: UNK
     Dates: start: 20170315, end: 20170318
  2. ORTANOL [Concomitant]
     Active Substance: OMEPRAZOLE
     Dosage: UNK
  3. OCTEGRA [Suspect]
     Active Substance: MOXIFLOXACIN
     Indication: PNEUMONIA
     Dosage: UNK
     Route: 048
     Dates: start: 20170321, end: 20170323
  4. CONCOR [Concomitant]
     Active Substance: BISOPROLOL FUMARATE
     Dosage: UNK
  5. NORVASC [Concomitant]
     Active Substance: AMLODIPINE BESYLATE
     Dosage: UNK
  6. NEXIUM [Concomitant]
     Active Substance: ESOMEPRAZOLE MAGNESIUM
     Dosage: UNK
  7. PULMOTIN [GUAIFENESIN,THYMUS VULGARIS FLUID EXTRACT] [Concomitant]
     Dosage: UNK
     Dates: start: 20170321
  8. CLARICIDE [Concomitant]
     Indication: PNEUMONIA
     Dosage: UNK
     Dates: start: 20170318, end: 20170321
  9. TAMSULOSIN [Concomitant]
     Active Substance: TAMSULOSIN
     Dosage: UNK

REACTIONS (5)
  - Unresponsive to stimuli [Recovering/Resolving]
  - Face oedema [Recovering/Resolving]
  - Myocardial infarction [Recovering/Resolving]
  - Abdominal pain [Recovering/Resolving]
  - Epilepsy [Recovering/Resolving]

NARRATIVE: CASE EVENT DATE: 201703
